FAERS Safety Report 11233679 (Version 3)
Quarter: 2015Q3

REPORT INFORMATION
  Report Type: Spontaneous
  Country: JP (occurrence: JP)
  Receive Date: 20150702
  Receipt Date: 20150715
  Transmission Date: 20151125
  Serious: Yes (Death, Life-Threatening, Hospitalization)
  Sender: FDA-Public Use
  Company Number: JP-AMGEN-JPNSP2015064492

PATIENT
  Age: 83 Year
  Sex: Male
  Weight: 62 kg

DRUGS (10)
  1. URIEF [Concomitant]
     Active Substance: SILODOSIN
     Indication: BENIGN PROSTATIC HYPERPLASIA
     Dosage: 4 MG, BID
     Route: 048
     Dates: start: 20140916
  2. ZOLADEX LA [Concomitant]
     Active Substance: GOSERELIN ACETATE
     Indication: PROSTATE CANCER
     Dosage: 120 MG, Q3MO
     Route: 058
     Dates: start: 20131016
  3. RANMARK [Suspect]
     Active Substance: DENOSUMAB
     Indication: METASTASES TO BONE
     Dosage: 120 MG, UNK
     Route: 023
     Dates: start: 20150527
  4. DENOTAS [Concomitant]
     Active Substance: CALCIUM CARBONATE\CHOLECALCIFEROL\MAGNESIUM CARBONATE
     Dosage: UNK
     Route: 048
     Dates: start: 20150527, end: 20150602
  5. DISTIGMINE BROMIDE [Concomitant]
     Active Substance: DISTIGMINE BROMIDE
     Indication: NEUROGENIC BLADDER
     Dosage: 5 MG, QD
     Route: 048
     Dates: start: 20101111
  6. HACHIMIJIOGAN [Concomitant]
     Active Substance: HERBALS
     Indication: BENIGN PROSTATIC HYPERPLASIA
     Dosage: 2.5 G, TID
     Route: 048
     Dates: start: 20120822
  7. BAYASPIRIN [Concomitant]
     Active Substance: ASPIRIN
     Indication: THROMBOSIS PROPHYLAXIS
     Dosage: 100 MG, QD
     Route: 048
     Dates: start: 20150108
  8. HOCHUEKKITO                        /07973001/ [Concomitant]
     Indication: ILL-DEFINED DISORDER
     Dosage: 2.5 G, TID
     Route: 048
     Dates: start: 20150527
  9. DECADRON [Concomitant]
     Active Substance: DEXAMETHASONE
     Indication: PROSTATE CANCER
     Dosage: 1 MG, QD
     Route: 048
     Dates: start: 20150205
  10. PROSEXOL [Concomitant]
     Active Substance: ETHINYL ESTRADIOL
     Indication: PROSTATE CANCER
     Dosage: 0.5 MG, BID
     Route: 048
     Dates: start: 20150107

REACTIONS (5)
  - Hypocalcaemia [Not Recovered/Not Resolved]
  - Pneumonia aspiration [Fatal]
  - Intestinal obstruction [Not Recovered/Not Resolved]
  - Septic shock [Fatal]
  - Hypophosphataemia [Not Recovered/Not Resolved]

NARRATIVE: CASE EVENT DATE: 20150603
